FAERS Safety Report 12142381 (Version 1)
Quarter: 2016Q1

REPORT INFORMATION
  Report Type: Spontaneous
  Country: CA (occurrence: CA)
  Receive Date: 20160303
  Receipt Date: 20160303
  Transmission Date: 20160526
  Serious: Yes (Death)
  Sender: FDA-Public Use
  Company Number: CA-TEVA-639421ACC

PATIENT
  Age: 68 Year
  Sex: Male
  Weight: 56 kg

DRUGS (12)
  1. FLOVENT [Concomitant]
     Active Substance: FLUTICASONE PROPIONATE
  2. LOSEC [Concomitant]
     Active Substance: OMEPRAZOLE
  3. VITAMIN D [Concomitant]
     Active Substance: CHOLECALCIFEROL
  4. ACTONEL [Concomitant]
     Active Substance: RISEDRONATE SODIUM
  5. TAMSULOSIN CR [Concomitant]
     Active Substance: TAMSULOSIN
  6. PREDNISONE. [Concomitant]
     Active Substance: PREDNISONE
  7. RAMIPRIL. [Concomitant]
     Active Substance: RAMIPRIL
  8. VINORELBINE TARTRATE FOR INJECTION [Suspect]
     Active Substance: VINORELBINE TARTRATE
     Indication: LUNG CANCER METASTATIC
     Route: 042
  9. HYDROMORPH CONTIN [Concomitant]
     Active Substance: HYDROMORPHONE
  10. PLAQUENIL [Concomitant]
     Active Substance: HYDROXYCHLOROQUINE SULFATE
  11. CALCIUM [Concomitant]
     Active Substance: CALCIUM
  12. CELEBREX [Concomitant]
     Active Substance: CELECOXIB

REACTIONS (7)
  - Fatigue [Fatal]
  - Dyspnoea [Fatal]
  - Supraventricular tachycardia [Fatal]
  - Hypoxia [Fatal]
  - Blood pressure decreased [Fatal]
  - Dysuria [Fatal]
  - Arrhythmia [Fatal]
